FAERS Safety Report 4951873-5 (Version None)
Quarter: 2006Q1

REPORT INFORMATION
  Report Type: 
  Country: None (occurrence: None)
  Receive Date: 20060323
  Receipt Date: 20050908
  Transmission Date: 20060701
  Serious: Yes (Death, Hospitalization)
  Sender: FDA-Public Use
  Company Number: US-MERCK-0509USA01063

PATIENT
  Age: 78 Year
  Sex: Female
  Weight: 73 kg

DRUGS (7)
  1. VIOXX [Suspect]
     Indication: ARTHRALGIA
     Route: 048
     Dates: start: 20020701, end: 20040801
  2. POTASSIUM CHLORIDE [Concomitant]
     Route: 065
  3. LASIX [Concomitant]
     Route: 065
  4. ATENOLOL [Concomitant]
     Route: 065
  5. ADALAT [Concomitant]
     Route: 065
  6. DARVOCET [Concomitant]
     Route: 065
  7. GLUCOSAMINE [Concomitant]
     Route: 065

REACTIONS (3)
  - CEREBROVASCULAR ACCIDENT [None]
  - DEATH [None]
  - MYOCARDIAL INFARCTION [None]
